FAERS Safety Report 5373620-8 (Version None)
Quarter: 2007Q2

REPORT INFORMATION
  Report Type: 
  Country: None (occurrence: None)
  Receive Date: 20070628
  Receipt Date: 20070619
  Transmission Date: 20071010
  Serious: Yes (Other)
  Sender: FDA-Public Use
  Company Number: PHNU2007DE02189

PATIENT
  Age: 14 Year
  Sex: Female
  Weight: 32 kg

DRUGS (1)
  1. DESFERAL [Suspect]
     Indication: THALASSAEMIA BETA
     Dosage: 750 MG/DAY
     Route: 065
     Dates: start: 20070226, end: 20070515

REACTIONS (1)
  - HODGKIN'S DISEASE [None]
